FAERS Safety Report 6177015-9 (Version None)
Quarter: 2009Q2

REPORT INFORMATION
  Report Type: 
  Country: None (occurrence: None)
  Receive Date: 20090501
  Receipt Date: 20090305
  Transmission Date: 20091009
  Serious: Yes (Hospitalization)
  Sender: FDA-Public Use
  Company Number: US-ALEXION-A200900183

PATIENT

DRUGS (2)
  1. SOLIRIS [Suspect]
     Dosage: UNK
  2. RASBURICASE [Concomitant]
     Dosage: UNK

REACTIONS (4)
  - BACK PAIN [None]
  - BONE PAIN [None]
  - FATIGUE [None]
  - LETHARGY [None]
